FAERS Safety Report 5868178-0 (Version None)
Quarter: 2008Q3

REPORT INFORMATION
  Report Type: 
  Country: None (occurrence: None)
  Receive Date: 20080902
  Receipt Date: 20080822
  Transmission Date: 20090109
  Serious: No
  Sender: FDA-Public Use
  Company Number: US-PFIZER INC-2008055143

PATIENT
  Sex: Female
  Weight: 59.4 kg

DRUGS (11)
  1. ZYVOX [Suspect]
     Indication: CELLULITIS
     Dosage: DAILY DOSE:600MG
     Route: 048
     Dates: start: 20080601, end: 20080601
  2. ZYVOX [Suspect]
     Indication: STAPHYLOCOCCAL INFECTION
  3. CLINDAMYCIN HYDROCHLORIDE [Suspect]
     Indication: WOUND
  4. ALTACE [Concomitant]
  5. LEVOTHYROXINE SODIUM [Concomitant]
  6. DIGOXIN [Concomitant]
  7. WARFARIN SODIUM [Concomitant]
  8. NITROGLYCERIN [Concomitant]
  9. FOLTX [Concomitant]
  10. MULTI-VITAMINS [Concomitant]
  11. LORTAB [Concomitant]

REACTIONS (1)
  - NO ADVERSE EVENT [None]
